FAERS Safety Report 7518024-4 (Version None)
Quarter: 2011Q2

REPORT INFORMATION
  Report Type: 
  Country: None (occurrence: None)
  Receive Date: 20110602
  Receipt Date: 20110523
  Transmission Date: 20111010
  Serious: Yes (Hospitalization)
  Sender: FDA-Public Use
  Company Number: FR-JNJFOC-20110511106

PATIENT
  Age: 67 Year
  Sex: Male

DRUGS (14)
  1. SPIRIVA [Concomitant]
     Route: 065
  2. LEVOFLOXACIN [Suspect]
     Indication: PRODUCT USED FOR UNKNOWN INDICATION
     Route: 048
     Dates: start: 20110205, end: 20110209
  3. KAYEXALATE [Concomitant]
     Route: 065
  4. RENVELA [Concomitant]
     Route: 065
  5. OFLOXACIN [Concomitant]
     Route: 065
     Dates: end: 20110205
  6. BUDESONIDE [Concomitant]
     Route: 065
  7. FLUINDIONE [Interacting]
     Route: 048
     Dates: start: 20110209
  8. VANCOMYCINE HYDROCHLORIDE [Interacting]
     Indication: PRODUCT USED FOR UNKNOWN INDICATION
     Route: 042
     Dates: start: 20110202, end: 20110211
  9. FLAGYL [Interacting]
     Indication: PRODUCT USED FOR UNKNOWN INDICATION
     Route: 048
     Dates: start: 20110202, end: 20110209
  10. FLUINDIONE [Interacting]
     Indication: PRODUCT USED FOR UNKNOWN INDICATION
     Dosage: FEW YEARS
     Route: 048
     Dates: end: 20110207
  11. ZANTAC [Concomitant]
     Route: 065
  12. LOVENOX [Interacting]
     Indication: THROMBOSIS PROPHYLAXIS
     Route: 058
     Dates: start: 20110202, end: 20110207
  13. LASIX [Concomitant]
     Route: 065
  14. PYOSTACINE [Concomitant]
     Indication: LUNG INFECTION
     Route: 065
     Dates: start: 20110131, end: 20110202

REACTIONS (3)
  - DRUG INTERACTION [None]
  - INTERNATIONAL NORMALISED RATIO INCREASED [None]
  - EPISTAXIS [None]
